FAERS Safety Report 26083116 (Version 1)
Quarter: 2025Q4

REPORT INFORMATION
  Report Type: Spontaneous
  Country: US (occurrence: None)
  Receive Date: 20251124
  Receipt Date: 20251124
  Transmission Date: 20260118
  Serious: Yes (Hospitalization)
  Sender: FDA-CTU
  Company Number: None

PATIENT
  Age: 101 Year
  Sex: Male

DRUGS (1)
  1. HEPARIN SODIUM [Suspect]
     Active Substance: HEPARIN SODIUM
     Route: 042
     Dates: start: 20240719, end: 20240721

REACTIONS (3)
  - Haematoma [None]
  - Compartment syndrome [None]
  - Therapy interrupted [None]

NARRATIVE: CASE EVENT DATE: 20240720
